FAERS Safety Report 18547865 (Version 1)
Quarter: 2020Q4

REPORT INFORMATION
  Report Type: Spontaneous
  Country: US (occurrence: US)
  Receive Date: 20201125
  Receipt Date: 20201125
  Transmission Date: 20210114
  Serious: Yes (Hospitalization, Other)
  Sender: FDA-Public Use
  Company Number: US-PURDUE-USA-2020-0166667

PATIENT
  Age: 74 Year
  Sex: Female

DRUGS (5)
  1. OXYCONTIN [Suspect]
     Active Substance: OXYCODONE HYDROCHLORIDE
     Indication: HIP ARTHROPLASTY
     Dosage: UNK
     Route: 048
  2. OXYCODONE/ ACETAMINOPHEN TABLETS [Suspect]
     Active Substance: ACETAMINOPHEN\OXYCODONE HYDROCHLORIDE
     Indication: HIP ARTHROPLASTY
     Dosage: UNK
     Route: 048
  3. TRAMADOL. [Suspect]
     Active Substance: TRAMADOL
     Indication: HIP ARTHROPLASTY
     Dosage: UNK
     Route: 048
  4. OXYCODONE HCL CR TABLETS (SIMILAR TO NDA 22-272) [Suspect]
     Active Substance: OXYCODONE HYDROCHLORIDE
     Indication: HIP ARTHROPLASTY
     Dosage: UNK
     Route: 048
  5. HYDROCODONE BITARTRATE AND ACETAMINOPHEN [Suspect]
     Active Substance: ACETAMINOPHEN\HYDROCODONE BITARTRATE
     Indication: HIP ARTHROPLASTY
     Dosage: UNK
     Route: 048

REACTIONS (13)
  - Hallucination [Unknown]
  - Illness [Unknown]
  - Mental impairment [Unknown]
  - Nightmare [Unknown]
  - Paranoia [Unknown]
  - Somnolence [Unknown]
  - Drug dependence [Unknown]
  - Fibromyalgia [Unknown]
  - Learning disability [Unknown]
  - Loss of consciousness [Unknown]
  - Cardiac disorder [Unknown]
  - Delusion [Unknown]
  - Spinal fracture [Unknown]

NARRATIVE: CASE EVENT DATE: 201904
